FAERS Safety Report 23723878 (Version 1)
Quarter: 2024Q2

REPORT INFORMATION
  Report Type: Spontaneous
  Country: US (occurrence: None)
  Receive Date: 20240409
  Receipt Date: 20240409
  Transmission Date: 20240715
  Serious: No
  Sender: FDA-Public Use
  Company Number: None

PATIENT
  Sex: Male

DRUGS (3)
  1. PROMACTA [Suspect]
     Active Substance: ELTROMBOPAG OLAMINE
     Dates: end: 20240404
  2. BRUKINSA [Concomitant]
     Active Substance: ZANUBRUTINIB
     Dates: end: 20240404
  3. VENCLEXTA [Concomitant]
     Active Substance: VENETOCLAX
     Dates: start: 20240318, end: 20240404

REACTIONS (1)
  - Death [None]
